FAERS Safety Report 18782859 (Version 1)
Quarter: 2021Q1

REPORT INFORMATION
  Report Type: Spontaneous
  Country: US (occurrence: US)
  Receive Date: 20210125
  Receipt Date: 20210125
  Transmission Date: 20210419
  Serious: No
  Sender: FDA-Public Use
  Company Number: US-ALLERGAN-2048884US

PATIENT
  Sex: Male

DRUGS (1)
  1. RESTASIS [Suspect]
     Active Substance: CYCLOSPORINE
     Indication: DRY EYE
     Dosage: 2 GTT, BID
     Route: 047
     Dates: end: 202003

REACTIONS (4)
  - Eye disorder [Not Recovered/Not Resolved]
  - Dry eye [Recovered/Resolved]
  - Ocular hyperaemia [Recovered/Resolved]
  - Periorbital swelling [Recovered/Resolved]
